FAERS Safety Report 25433705 (Version 13)
Quarter: 2025Q4

REPORT INFORMATION
  Report Type: Spontaneous
  Country: US (occurrence: US)
  Receive Date: 20250613
  Receipt Date: 20251028
  Transmission Date: 20260118
  Serious: Yes (Other)
  Sender: MDD OPERATIONS
  Company Number: US-MDD US Operations-MDD202505-001703

PATIENT
  Age: 67 Year
  Sex: Female
  Weight: 54.43 kg

DRUGS (23)
  1. ONAPGO [Suspect]
     Active Substance: APOMORPHINE HYDROCHLORIDE
     Indication: Parkinson^s disease
     Dosage: FOR 16 HOURS
  2. ONAPGO [Suspect]
     Active Substance: APOMORPHINE HYDROCHLORIDE
     Dosage: FOR 16 HOURS
     Dates: start: 202505
  3. ONAPGO [Suspect]
     Active Substance: APOMORPHINE HYDROCHLORIDE
     Dates: start: 202505
  4. ONAPGO [Suspect]
     Active Substance: APOMORPHINE HYDROCHLORIDE
     Dates: start: 2025
  5. ONAPGO [Suspect]
     Active Substance: APOMORPHINE HYDROCHLORIDE
     Dates: start: 2025
  6. ONAPGO [Suspect]
     Active Substance: APOMORPHINE HYDROCHLORIDE
     Dates: start: 20250619
  7. ONAPGO [Suspect]
     Active Substance: APOMORPHINE HYDROCHLORIDE
     Dosage: BOLUS
     Dates: start: 2025
  8. ONAPGO [Suspect]
     Active Substance: APOMORPHINE HYDROCHLORIDE
  9. ONAPGO [Suspect]
     Active Substance: APOMORPHINE HYDROCHLORIDE
     Dosage: CONTINUOUS DRIP FOR 15-16 HOURS A DAY FOR ABOUT 6 WEEKS NOW
  10. ONAPGO [Suspect]
     Active Substance: APOMORPHINE HYDROCHLORIDE
     Dates: start: 20251015
  11. APOKYN [Suspect]
     Active Substance: APOMORPHINE HYDROCHLORIDE
     Indication: Product used for unknown indication
     Dosage: OR 0-2 SHOTS A DAY/2-3 TIMES A DAY, ONE TO THREE SHOTS A DAY
     Route: 058
  12. APOKYN [Suspect]
     Active Substance: APOMORPHINE HYDROCHLORIDE
     Dosage: ONE OR TWO A DAY
  13. APOKYN [Suspect]
     Active Substance: APOMORPHINE HYDROCHLORIDE
     Dosage: NOT PROVIDED
  14. RYTARY [Suspect]
     Active Substance: CARBIDOPA\LEVODOPA
     Indication: Product used for unknown indication
     Dosage: NOT PROVIDED
  15. RYTARY [Suspect]
     Active Substance: CARBIDOPA\LEVODOPA
     Dosage: NOT PROVIDED
  16. RYTARY [Suspect]
     Active Substance: CARBIDOPA\LEVODOPA
  17. RYTARY [Suspect]
     Active Substance: CARBIDOPA\LEVODOPA
  18. GOCOVRI [Concomitant]
     Active Substance: AMANTADINE
     Dosage: NOT PROVIDED
  19. GOCOVRI [Concomitant]
     Active Substance: AMANTADINE
     Dosage: 137 EVERY PM
  20. NEUPRO [Concomitant]
     Active Substance: ROTIGOTINE
     Indication: Parkinson^s disease
     Dosage: NOT PROVIDED
  21. METANDREN [Concomitant]
     Active Substance: METHYLTESTOSTERONE
     Indication: Blood pressure measurement
     Dosage: NOT PROVIDED
  22. ONGENTYS [Concomitant]
     Active Substance: OPICAPONE
  23. TRAZODONE [Concomitant]
     Active Substance: TRAZODONE HYDROCHLORIDE
     Dosage: NOT PROVIDED

REACTIONS (19)
  - Dystonia [Not Recovered/Not Resolved]
  - Dyskinesia [Not Recovered/Not Resolved]
  - Infusion site bruising [Unknown]
  - Infusion site haematoma [Recovering/Resolving]
  - Balance disorder [Recovered/Resolved]
  - Gait disturbance [Recovered/Resolved]
  - Balance disorder [Recovered/Resolved]
  - Nausea [Not Recovered/Not Resolved]
  - Fall [Recovering/Resolving]
  - Infusion site erythema [Recovering/Resolving]
  - Loss of personal independence in daily activities [Recovering/Resolving]
  - Pain in extremity [Recovering/Resolving]
  - Muscular weakness [Recovering/Resolving]
  - Infusion site induration [Recovering/Resolving]
  - Infusion site nodule [Recovering/Resolving]
  - Drug dose omission by device [Unknown]
  - Device malfunction [Unknown]
  - Device defective [Unknown]
  - Device breakage [Unknown]

NARRATIVE: CASE EVENT DATE: 20250101
